FAERS Safety Report 4550478-8 (Version None)
Quarter: 2004Q4

REPORT INFORMATION
  Report Type: 
  Country: None (occurrence: None)
  Receive Date: 20041217
  Receipt Date: 20040901
  Transmission Date: 20050328
  Serious: Yes (Hospitalization)
  Sender: FDA-Public Use
  Company Number: 2004-BP-07537BP

PATIENT
  Age: 50 Year
  Sex: Male

DRUGS (6)
  1. SPIRIVA [Suspect]
     Indication: CHRONIC OBSTRUCTIVE AIRWAYS DISEASE
     Dosage: 18 MCG (18 MCG) , IH
     Route: 055
     Dates: start: 20040821
  2. ACETYLSALICYLIC ACID SRT [Concomitant]
  3. PLAVIX [Concomitant]
  4. DILANTIN [Concomitant]
  5. LODINE (ETODLOAC) [Concomitant]
  6. ORAL HYPOGLYCEMIC AGENT [Concomitant]

REACTIONS (1)
  - ANGIONEUROTIC OEDEMA [None]
